FAERS Safety Report 17349067 (Version 2)
Quarter: 2020Q3

REPORT INFORMATION
  Report Type: Report from Study
  Country: FR (occurrence: FR)
  Receive Date: 20200130
  Receipt Date: 20200720
  Transmission Date: 20201102
  Serious: Yes (Other)
  Sender: FDA-Public Use
  Company Number: FR-PFIZER INC-2020041818

PATIENT

DRUGS (1)
  1. GEMCITABINE HYDROCHLORIDE. [Suspect]
     Active Substance: GEMCITABINE HYDROCHLORIDE
     Indication: PANCREATIC CARCINOMA
     Dosage: 1000 MG/M2, CYCLIC (BY 30?MIN IV PERFUSION ON DAY 1 WEEKLY FOR 3 WEEKS)
     Route: 042

REACTIONS (1)
  - Gamma-glutamyltransferase [Unknown]
